FAERS Safety Report 5243633-5 (Version None)
Quarter: 2007Q1

REPORT INFORMATION
  Report Type: 
  Country: None (occurrence: None)
  Receive Date: 20070222
  Receipt Date: 20070215
  Transmission Date: 20070707
  Serious: Yes (Hospitalization, Other)
  Sender: FDA-Public Use
  Company Number: 2007UW03127

PATIENT
  Age: 75 Year
  Sex: Female
  Weight: 45 kg

DRUGS (4)
  1. ATENOLOL [Suspect]
     Indication: HYPERTENSION
     Dosage: }3 YEARS
     Route: 048
     Dates: end: 20070101
  2. ATENOLOL [Suspect]
     Route: 048
     Dates: start: 20070101
  3. FRONTAL [Concomitant]
     Indication: INSOMNIA
     Dosage: } 2 YEARS
     Route: 048
  4. GLIMIPIRIDA [Concomitant]
     Indication: DIABETES MELLITUS
     Dosage: } 1 YEAR
     Route: 048

REACTIONS (3)
  - BLOOD PRESSURE INCREASED [None]
  - DRY EYE [None]
  - HYPERTENSIVE CRISIS [None]
